FAERS Safety Report 21170909 (Version 1)
Quarter: 2022Q3

REPORT INFORMATION
  Report Type: Spontaneous
  Country: US (occurrence: None)
  Receive Date: 20220804
  Receipt Date: 20220804
  Transmission Date: 20221026
  Serious: Yes (Other)
  Sender: FDA-Public Use
  Company Number: US-MICRO LABS LIMITED-ML2022-03988

PATIENT
  Age: 71 Year
  Sex: Female

DRUGS (12)
  1. DIPHENHYDRAMINE HYDROCHLORIDE [Suspect]
     Active Substance: DIPHENHYDRAMINE HYDROCHLORIDE
     Indication: Dystonia
     Route: 042
  2. VALPROIC ACID [Concomitant]
     Active Substance: VALPROIC ACID
     Indication: Agitation
  3. VALPROIC ACID [Concomitant]
     Active Substance: VALPROIC ACID
     Indication: Aggression
  4. SERTRALINE [Concomitant]
     Active Substance: SERTRALINE HYDROCHLORIDE
     Indication: Aggression
  5. SERTRALINE [Concomitant]
     Active Substance: SERTRALINE HYDROCHLORIDE
     Indication: Agitation
  6. OLANZAPINE [Concomitant]
     Active Substance: OLANZAPINE
     Indication: Agitation
  7. OLANZAPINE [Concomitant]
     Active Substance: OLANZAPINE
     Indication: Aggression
  8. MEMANTINE [Concomitant]
     Active Substance: MEMANTINE
     Indication: Agitation
  9. MEMANTINE [Concomitant]
     Active Substance: MEMANTINE
     Indication: Aggression
  10. QUETIAPINE [Concomitant]
     Active Substance: QUETIAPINE
  11. DONEPEZIL [Concomitant]
     Active Substance: DONEPEZIL
  12. ESCITALOPRAM. [Concomitant]

REACTIONS (1)
  - Delirium [Recovered/Resolved]
